FAERS Safety Report 7244395-2 (Version None)
Quarter: 2011Q1

REPORT INFORMATION
  Report Type: 
  Country: None (occurrence: None)
  Receive Date: 20110125
  Receipt Date: 20100507
  Transmission Date: 20110831
  Serious: Yes (Hospitalization)
  Sender: FDA-Public Use
  Company Number: US-PFIZER INC-2010057866

PATIENT

DRUGS (3)
  1. ARGATROBAN [Suspect]
     Dosage: 2 UG/KG/MIN
     Route: 042
     Dates: start: 20100506, end: 20100506
  2. ARGATROBAN [Suspect]
     Dosage: 1 UG/KG, MIN
     Dates: start: 20100507
  3. WARFARIN [Concomitant]
     Dosage: 5 MG, DAILY

REACTIONS (2)
  - ACTIVATED PARTIAL THROMBOPLASTIN TIME PROLONGED [None]
  - INTERNATIONAL NORMALISED RATIO INCREASED [None]
